FAERS Safety Report 18152022 (Version 1)
Quarter: 2020Q3

REPORT INFORMATION
  Report Type: Spontaneous
  Country: US (occurrence: US)
  Receive Date: 20200814
  Receipt Date: 20200814
  Transmission Date: 20201103
  Serious: Yes (Other)
  Sender: FDA-Public Use
  Company Number: US-GW PHARMA-202008USGW02745

PATIENT

DRUGS (2)
  1. EPIDIOLEX [Suspect]
     Active Substance: CANNABIDIOL
     Indication: LENNOX-GASTAUT SYNDROME
     Dosage: 150 MILLIGRAM, BID (DAY 1 TO 14)
     Route: 048
     Dates: start: 20200716, end: 202007
  2. EPIDIOLEX [Suspect]
     Active Substance: CANNABIDIOL
     Dosage: 450 MILLIGRAM, QD (150 MG IN AM AND 300 MG QHS 15 TO 28)
     Route: 048
     Dates: start: 202007

REACTIONS (1)
  - Seizure [Not Recovered/Not Resolved]

NARRATIVE: CASE EVENT DATE: 202008
